FAERS Safety Report 22529635 (Version 3)
Quarter: 2023Q2

REPORT INFORMATION
  Report Type: Report from Study
  Country: US (occurrence: US)
  Receive Date: 20230607
  Receipt Date: 20230627
  Transmission Date: 20230722
  Serious: Yes (Other)
  Sender: FDA-Public Use
  Company Number: US-JAZZ-2022-US-022176

PATIENT
  Sex: Male

DRUGS (4)
  1. XYREM [Suspect]
     Active Substance: SODIUM OXYBATE
     Indication: Narcolepsy
     Dosage: 4.5 GRAM, BID
  2. XYREM [Suspect]
     Active Substance: SODIUM OXYBATE
     Indication: Cataplexy
     Dosage: 2.25 GRAM, BID
  3. XYREM [Suspect]
     Active Substance: SODIUM OXYBATE
     Indication: Somnolence
  4. ASPIRIN [Concomitant]
     Active Substance: ASPIRIN
     Indication: Product used for unknown indication
     Dosage: UNK
     Dates: start: 20230525

REACTIONS (16)
  - Joint injury [Unknown]
  - Renal pain [Unknown]
  - Muscle tightness [Unknown]
  - Inflammation [Unknown]
  - Adverse drug reaction [Unknown]
  - Blood pressure abnormal [Recovered/Resolved]
  - Lower respiratory tract infection [Recovered/Resolved]
  - Migraine [Unknown]
  - Vertigo positional [Unknown]
  - Dizziness [Recovered/Resolved]
  - Muscle twitching [Unknown]
  - Anxiety [Unknown]
  - Depression [Unknown]
  - Treatment noncompliance [Unknown]
  - Intentional dose omission [Unknown]
  - Intentional product use issue [Unknown]
